FAERS Safety Report 5386335-7 (Version None)
Quarter: 2007Q3

REPORT INFORMATION
  Report Type: 
  Country: None (occurrence: None)
  Receive Date: 20070705
  Receipt Date: 20070705
  Transmission Date: 20080115
  Serious: No
  Sender: FDA-Public Use
  Company Number: None

PATIENT
  Age: 52 Year
  Sex: Female
  Weight: 90.2658 kg

DRUGS (1)
  1. HYDROXYCHLOROQUINE 200 MG WATSON [Suspect]
     Dosage: 1 TABLET TWICE A DAY

REACTIONS (1)
  - DYSGEUSIA [None]
